FAERS Safety Report 17287409 (Version 1)
Quarter: 2020Q1

REPORT INFORMATION
  Report Type: Spontaneous
  Country: FR (occurrence: FR)
  Receive Date: 20200120
  Receipt Date: 20200120
  Transmission Date: 20200409
  Serious: Yes (Other)
  Sender: FDA-Public Use
  Company Number: FR-AUROBINDO-AUR-APL-2020-002853

PATIENT
  Age: 2 Year
  Sex: Female
  Weight: 8.2 kg

DRUGS (1)
  1. PARACETAMOL [Suspect]
     Active Substance: ACETAMINOPHEN
     Indication: ENCEPHALITIS
     Dosage: 1000 MILLIGRAM, 1 TOTAL
     Route: 041
     Dates: start: 20191225

REACTIONS (4)
  - Incorrect dose administered [Recovered/Resolved]
  - Analgesic drug level increased [Recovered/Resolved]
  - Accidental overdose [Recovered/Resolved]
  - Product prescribing error [Recovered/Resolved]

NARRATIVE: CASE EVENT DATE: 20191225
